FAERS Safety Report 10218823 (Version 1)
Quarter: 2014Q2

REPORT INFORMATION
  Report Type: Spontaneous
  Country: GR (occurrence: None)
  Receive Date: 20140603
  Receipt Date: 20140603
  Transmission Date: 20141212
  Serious: Yes (Hospitalization)
  Sender: FDA-Public Use
  Company Number: 7295032

PATIENT
  Age: 13 Year
  Sex: Male

DRUGS (1)
  1. THYROXINE (LEVOTHYROXINE) (LEVOTHYROXINE SODIUM) [Suspect]
     Indication: PRIMARY HYPOTHYROIDISM

REACTIONS (2)
  - Pseudohypoparathyroidism [None]
  - Generalised resistance to thyroid hormone [None]
